FAERS Safety Report 7531200-X (Version None)
Quarter: 2011Q2

REPORT INFORMATION
  Report Type: 
  Country: None (occurrence: None)
  Receive Date: 20110527
  Receipt Date: 20110518
  Transmission Date: 20111010
  Serious: Yes (Other)
  Sender: FDA-Public Use
  Company Number: 2011SP018677

PATIENT
  Age: 17 Year
  Sex: Female

DRUGS (2)
  1. CLARITIN [Suspect]
     Indication: RHINITIS ALLERGIC
     Dosage: 10 MG;QD;PO
     Route: 048
     Dates: start: 20110325, end: 20110422
  2. MONTELUKAST SODIUM [Concomitant]

REACTIONS (4)
  - FOAMING AT MOUTH [None]
  - LOSS OF CONSCIOUSNESS [None]
  - CONJUNCTIVITIS ALLERGIC [None]
  - EPILEPSY [None]
